FAERS Safety Report 18315311 (Version 2)
Quarter: 2020Q3

REPORT INFORMATION
  Report Type: Spontaneous
  Country: GB (occurrence: GB)
  Receive Date: 20200926
  Receipt Date: 20200929
  Transmission Date: 20201103
  Serious: Yes (Disabling, Other)
  Sender: FDA-Public Use
  Company Number: GB-TEVA-2020-GB-1831017

PATIENT
  Age: 67 Year
  Sex: Female
  Weight: 52 kg

DRUGS (1)
  1. NITROFURANTOIN. [Suspect]
     Active Substance: NITROFURANTOIN
     Indication: URINARY TRACT INFECTION
     Route: 048
     Dates: start: 20200610, end: 20200613

REACTIONS (6)
  - Malaise [Unknown]
  - Hepatic enzyme increased [Not Recovered/Not Resolved]
  - Decreased appetite [Unknown]
  - Antinuclear antibody increased [Not Recovered/Not Resolved]
  - Gastrointestinal disorder [Unknown]
  - Myalgia [Unknown]

NARRATIVE: CASE EVENT DATE: 20200701
